FAERS Safety Report 7733625 (Version 3)
Quarter: 2013Q2

REPORT INFORMATION
  Report Type: Spontaneous
  Country: US (occurrence: US)
  Receive Date: 20101223
  Receipt Date: 20130524
  Transmission Date: 20140414
  Serious: Yes (Hospitalization, Other)
  Sender: FDA-Public Use
  Company Number: US-US-EMD SERONO, INC.-7032701

PATIENT
  Sex: Female

DRUGS (2)
  1. REBIF [Suspect]
     Indication: MULTIPLE SCLEROSIS
     Route: 058
     Dates: start: 20100315, end: 201011
  2. REBIF [Suspect]
     Route: 058
     Dates: end: 2012

REACTIONS (10)
  - Benign neoplasm [Unknown]
  - Intestinal prolapse [Unknown]
  - Hernia [Unknown]
  - Appendicitis [Unknown]
  - Hepatic neoplasm [Unknown]
  - Hepatic cirrhosis [Unknown]
  - Renal cyst [Unknown]
  - Hyperhidrosis [Recovering/Resolving]
  - Arthralgia [Recovering/Resolving]
  - Injection site erythema [Recovering/Resolving]
